FAERS Safety Report 20138522 (Version 7)
Quarter: 2022Q3

REPORT INFORMATION
  Report Type: Spontaneous
  Country: US (occurrence: US)
  Receive Date: 20211202
  Receipt Date: 20220916
  Transmission Date: 20221027
  Serious: Yes (Disabling, Other)
  Sender: FDA-Public Use
  Company Number: US-PFIZER INC-2020481267

PATIENT
  Age: 58 Year
  Sex: Female

DRUGS (2)
  1. FRAGMIN [Suspect]
     Active Substance: DALTEPARIN SODIUM
     Indication: Cryopyrin associated periodic syndrome
     Dosage: 12500 IU, DAILY
     Route: 058
     Dates: start: 20211123
  2. FRAGMIN [Suspect]
     Active Substance: DALTEPARIN SODIUM
     Indication: Pulmonary embolism

REACTIONS (3)
  - Brain injury [Unknown]
  - Transient ischaemic attack [Unknown]
  - Cough [Unknown]
